FAERS Safety Report 4772448-7 (Version None)
Quarter: 2005Q3

REPORT INFORMATION
  Report Type: 
  Country: None (occurrence: None)
  Receive Date: 20050919
  Receipt Date: 20040920
  Transmission Date: 20060218
  Serious: No
  Sender: FDA-Public Use
  Company Number: US-BRISTOL-MYERS SQUIBB COMPANY-12706982

PATIENT
  Sex: Female

DRUGS (1)
  1. CAFCIT [Suspect]
     Route: 042
     Dates: start: 20040920, end: 20040920

REACTIONS (1)
  - INCORRECT ROUTE OF DRUG ADMINISTRATION [None]
